FAERS Safety Report 8368181-5 (Version None)
Quarter: 2012Q2

REPORT INFORMATION
  Report Type: 
  Country: None (occurrence: None)
  Receive Date: 20120517
  Receipt Date: 20120514
  Transmission Date: 20120825
  Serious: Yes (Hospitalization)
  Sender: FDA-Public Use
  Company Number: DK-AMGEN-DNKSP2012019321

PATIENT
  Age: 69 Year
  Sex: Male

DRUGS (7)
  1. PREDNISONE [Concomitant]
     Indication: MALIGNANT LYMPHOID NEOPLASM
     Dosage: 500 MG, UNK
     Route: 048
     Dates: start: 20110822
  2. CYCLOPHOSPHAMIDE [Concomitant]
     Indication: MALIGNANT LYMPHOID NEOPLASM
     Dosage: 1500 MG, UNK
     Route: 042
     Dates: start: 20110822
  3. PEGFILGRASTIM [Suspect]
     Indication: MALIGNANT LYMPHOID NEOPLASM
     Dosage: 6 MG, UNK
     Route: 042
     Dates: start: 20110823
  4. DOXORUBICIN HYDROCHLORIDE [Concomitant]
     Indication: MALIGNANT LYMPHOID NEOPLASM
     Dosage: 100 MG, UNK
     Route: 042
     Dates: start: 20110822
  5. RITUXIMAB [Concomitant]
     Indication: MALIGNANT LYMPHOID NEOPLASM
     Dosage: 500 MG, UNK
     Route: 042
     Dates: start: 20110822
  6. VINCRISTINE [Concomitant]
     Indication: MALIGNANT LYMPHOID NEOPLASM
     Dosage: 2 MG, UNK
     Route: 042
     Dates: start: 20110822
  7. WARFARIN SODIUM [Concomitant]
     Indication: DEEP VEIN THROMBOSIS
     Dosage: 5 MG, UNK
     Route: 048
     Dates: start: 20111205

REACTIONS (4)
  - PNEUMOTHORAX [None]
  - GASTRIC ULCER HAEMORRHAGE [None]
  - IATROGENIC INJURY [None]
  - OESOPHAGEAL PERFORATION [None]
